FAERS Safety Report 24040262 (Version 1)
Quarter: 2024Q3

REPORT INFORMATION
  Report Type: Spontaneous
  Country: US (occurrence: None)
  Receive Date: 20240701
  Receipt Date: 20240701
  Transmission Date: 20241017
  Serious: Yes (Hospitalization)
  Sender: Public
  Company Number: None

PATIENT
  Age: 85 Year
  Sex: Male
  Weight: 65.7 kg

DRUGS (1)
  1. BRUKINSA [Suspect]
     Active Substance: ZANUBRUTINIB
     Indication: Waldenstrom^s macroglobulinaemia
     Dosage: 160 MG TWICE A DAY ORAL?
     Route: 048
     Dates: start: 20240323, end: 20240418

REACTIONS (5)
  - Urinary tract infection [None]
  - Tachycardia [None]
  - Leukopenia [None]
  - Upper gastrointestinal haemorrhage [None]
  - Transfusion [None]

NARRATIVE: CASE EVENT DATE: 20240418
